APPROVED DRUG PRODUCT: ESOMEPRAZOLE SODIUM
Active Ingredient: ESOMEPRAZOLE SODIUM
Strength: EQ 20MG BASE/VIAL
Dosage Form/Route: INJECTABLE;INTRAVENOUS
Application: A204657 | Product #001
Applicant: EUGIA PHARMA SPECIALITIES LTD
Approved: Aug 10, 2016 | RLD: No | RS: No | Type: DISCN